FAERS Safety Report 17639448 (Version 1)
Quarter: 2020Q2

REPORT INFORMATION
  Report Type: Report from Study
  Country: GB (occurrence: GB)
  Receive Date: 20200407
  Receipt Date: 20200407
  Transmission Date: 20200713
  Serious: Yes (Hospitalization)
  Sender: FDA-Public Use
  Company Number: GB-JNJFOC-20200407577

PATIENT
  Sex: Female

DRUGS (10)
  1. PREDNISOLONE. [Concomitant]
     Active Substance: PREDNISOLONE
  2. AMITRIPTYLINE [Concomitant]
     Active Substance: AMITRIPTYLINE
  3. PARACETAMOL [Concomitant]
     Active Substance: ACETAMINOPHEN
  4. STELARA [Suspect]
     Active Substance: USTEKINUMAB
  5. ESOMEPRAZOLE. [Concomitant]
     Active Substance: ESOMEPRAZOLE MAGNESIUM
  6. CODEINE [Concomitant]
     Active Substance: CODEINE
  7. PRUCALOPRIDE [Concomitant]
     Active Substance: PRUCALOPRIDE
  8. FOLIC ACID. [Concomitant]
     Active Substance: FOLIC ACID
  9. STELARA [Suspect]
     Active Substance: USTEKINUMAB
     Indication: PSORIATIC ARTHROPATHY
     Route: 058
     Dates: start: 20181019
  10. METHOTREXATE. [Concomitant]
     Active Substance: METHOTREXATE

REACTIONS (2)
  - Sepsis [Unknown]
  - Pneumonia [Unknown]
